FAERS Safety Report 21221224 (Version 1)
Quarter: 2022Q3

REPORT INFORMATION
  Report Type: Spontaneous
  Country: US (occurrence: None)
  Receive Date: 20220816
  Receipt Date: 20220816
  Transmission Date: 20221026
  Serious: No
  Sender: FDA-Public Use
  Company Number: None

PATIENT
  Sex: Female

DRUGS (9)
  1. CAPECITABINE [Suspect]
     Active Substance: CAPECITABINE
     Indication: Breast cancer female
     Dosage: FREQUENCY : TWICE A DAY;?
     Route: 048
     Dates: start: 202101
  2. ALPRAZOLAM [Concomitant]
     Active Substance: ALPRAZOLAM
  3. AFINITOR [Concomitant]
     Active Substance: EVEROLIMUS
  4. AROMASIN [Concomitant]
     Active Substance: EXEMESTANE
  5. ASPIRIN [Concomitant]
     Active Substance: ASPIRIN
  6. DEXAMETHASONE [Concomitant]
     Active Substance: DEXAMETHASONE
  7. DILTIAZEM [Concomitant]
     Active Substance: DILTIAZEM
  8. METOPROLOL [Concomitant]
     Active Substance: METOPROLOL
  9. VITAMIN D3 [Concomitant]
     Active Substance: CHOLECALCIFEROL

REACTIONS (1)
  - COVID-19 [None]
